FAERS Safety Report 10175656 (Version 2)
Quarter: 2014Q2

REPORT INFORMATION
  Report Type: Report from Study
  Country: US (occurrence: US)
  Receive Date: 20140516
  Receipt Date: 20140516
  Transmission Date: 20141212
  Serious: Yes (Other)
  Sender: FDA-Public Use
  Company Number: US-IPSEN BIOPHARMACEUTICALS, INC.-2014-0179

PATIENT
  Age: 14 Year
  Sex: Male

DRUGS (1)
  1. SOMATULINE DEPOT INJECTION (90MG) [Suspect]
     Indication: ACROMEGALY
     Dosage: 90 MG, ONCE EVERY 28 DAYS
     Route: 058
     Dates: start: 20131113

REACTIONS (5)
  - Loss of consciousness [Unknown]
  - Disturbance in attention [Recovered/Resolved]
  - Hypersomnia [Not Recovered/Not Resolved]
  - Dizziness [Recovered/Resolved]
  - Off label use [Unknown]
